FAERS Safety Report 12935135 (Version 2)
Quarter: 2016Q4

REPORT INFORMATION
  Report Type: Spontaneous
  Country: US (occurrence: US)
  Receive Date: 20161114
  Receipt Date: 20161124
  Transmission Date: 20170207
  Serious: Yes (Other)
  Sender: FDA-Public Use
  Company Number: PHEH2016US028770

PATIENT
  Age: 62 Year
  Sex: Female
  Weight: 74.83 kg

DRUGS (1)
  1. COSENTYX [Suspect]
     Active Substance: SECUKINUMAB
     Indication: PSORIASIS
     Dosage: 300 MG, ONCE A MONTH (MO)
     Route: 058
     Dates: start: 20160920

REACTIONS (6)
  - Swollen tongue [Recovered/Resolved]
  - Angioedema [Recovered/Resolved]
  - Hypoaesthesia [Unknown]
  - Diarrhoea [Unknown]
  - Angioedema [Recovering/Resolving]
  - Vomiting [Unknown]

NARRATIVE: CASE EVENT DATE: 20160920
